FAERS Safety Report 22297761 (Version 2)
Quarter: 2023Q4

REPORT INFORMATION
  Report Type: Spontaneous
  Country: CH (occurrence: CH)
  Receive Date: 20230509
  Receipt Date: 20231012
  Transmission Date: 20240109
  Serious: No
  Sender: FDA-Public Use
  Company Number: CH-ASTELLAS-2023US013442

PATIENT
  Age: 48 Year
  Sex: Female

DRUGS (9)
  1. XOSPATA [Suspect]
     Active Substance: GILTERITINIB
     Indication: Acute myeloid leukaemia
     Dosage: UNK UNK, CYCLIC (1 CYCLE)
     Route: 065
     Dates: start: 202304, end: 2023
  2. XOSPATA [Suspect]
     Active Substance: GILTERITINIB
     Indication: NPM1 gene mutation
  3. XOSPATA [Suspect]
     Active Substance: GILTERITINIB
     Indication: FLT3 gene mutation
  4. AZACITIDINE [Concomitant]
     Active Substance: AZACITIDINE
     Indication: Acute myeloid leukaemia
     Dosage: UNK UNK, CYCLIC (THERAPY STOPPED AFTER 1 CYCLE IN APR/ MAY-2023)
     Route: 065
     Dates: start: 202304, end: 2023
  5. AZACITIDINE [Concomitant]
     Active Substance: AZACITIDINE
     Indication: NPM1 gene mutation
  6. AZACITIDINE [Concomitant]
     Active Substance: AZACITIDINE
     Indication: FLT3 gene mutation
  7. VENETOCLAX [Concomitant]
     Active Substance: VENETOCLAX
     Indication: Acute myeloid leukaemia
     Dosage: UNK UNK, CYCLIC (THERAPY STOPPED AFTER 1 CYCLE IN APR/ MAY-2023)
     Route: 065
     Dates: start: 202304, end: 2023
  8. VENETOCLAX [Concomitant]
     Active Substance: VENETOCLAX
     Indication: NPM1 gene mutation
  9. VENETOCLAX [Concomitant]
     Active Substance: VENETOCLAX
     Indication: FLT3 gene mutation

REACTIONS (1)
  - Mental disorder [Unknown]
